FAERS Safety Report 5662579-1 (Version None)
Quarter: 2008Q1

REPORT INFORMATION
  Report Type: 
  Country: None (occurrence: None)
  Receive Date: 20080219
  Receipt Date: 20070918
  Transmission Date: 20080703
  Serious: Yes (Other)
  Sender: FDA-Public Use
  Company Number: PHEH2007US09751

PATIENT
  Age: 60 Year
  Sex: Male

DRUGS (6)
  1. TOBI(TOBRAMYCIN) SOL, AEROSOL METERED DOSE INH. [Suspect]
     Indication: BRONCHIECTASIS
     Dosage: 300 MG, 28 DAYS ON, 28 DAYS OFF, INHALATION
     Route: 055
     Dates: start: 20070301
  2. PREDNISONE TAB [Concomitant]
  3. INSULIN (INSULIN) [Concomitant]
  4. LASIX [Concomitant]
  5. LISINOPRIL [Concomitant]
  6. METFORMIN HCL [Concomitant]

REACTIONS (8)
  - BLOOD POTASSIUM INCREASED [None]
  - CONDITION AGGRAVATED [None]
  - DYSPHONIA [None]
  - DYSPNOEA [None]
  - FATIGUE [None]
  - MALAISE [None]
  - NASAL CONGESTION [None]
  - RENAL IMPAIRMENT [None]
